FAERS Safety Report 8026952 (Version 2)
Quarter: 2012Q4

REPORT INFORMATION
  Report Type: Report from Study
  Country: JP (occurrence: JP)
  Receive Date: 20110708
  Receipt Date: 20121205
  Transmission Date: 20130627
  Serious: Yes (Life-Threatening)
  Sender: FDA-Public Use
  Company Number: JP-CELGENEUS-087-21880-11070022

PATIENT
  Age: 73 Year
  Sex: Male

DRUGS (22)
  1. ROHYPNOL [Concomitant]
     Indication: DRUG USE FOR UNKNOWN INDICATION
     Dosage: 1 Milligram
     Route: 048
     Dates: start: 20110317
  2. BIOFERMIN R [Concomitant]
     Indication: DRUG USE FOR UNKNOWN INDICATION
     Dosage: 3 Gram
     Route: 048
     Dates: start: 20110317
  3. MONILAC [Concomitant]
     Indication: DRUG USE FOR UNKNOWN INDICATION
     Dosage: 30 milliliter
     Route: 048
     Dates: start: 20110317
  4. LACTEC G [Concomitant]
     Indication: DRUG USE FOR UNKNOWN INDICATION
     Dosage: 500 milliliter
     Route: 041
     Dates: start: 20110317, end: 20110331
  5. PANTETHINE [Concomitant]
     Indication: DRUG USE FOR UNKNOWN INDICATION
     Dosage: 200 Milligram
     Route: 041
     Dates: start: 20110317, end: 20110331
  6. VITAMEDIN [Concomitant]
     Indication: DRUG USE FOR UNKNOWN INDICATION
     Route: 041
     Dates: start: 20110317, end: 20110331
  7. SODIUM CHLORIDE [Concomitant]
     Indication: DRUG USE FOR UNKNOWN INDICATION
     Dosage: 20 milliliter
     Route: 041
     Dates: start: 20110317, end: 20110331
  8. CEFPIROME SULFATE [Concomitant]
     Indication: DRUG USE FOR UNKNOWN INDICATION
     Dosage: 2 Gram
     Route: 041
     Dates: start: 20110317, end: 20110323
  9. FENTANYL [Concomitant]
     Indication: DRUG USE FOR UNKNOWN INDICATION
     Route: 041
     Dates: start: 20110317, end: 20110331
  10. CELECOX [Concomitant]
     Indication: DRUG USE FOR UNKNOWN INDICATION
     Dosage: 200 Gram
     Route: 048
     Dates: start: 20110322
  11. DUROTEP [Concomitant]
     Indication: DRUG USE FOR UNKNOWN INDICATION
     Dosage: 2.8 Milligram
     Route: 062
     Dates: start: 20110317
  12. OXINORM [Concomitant]
     Indication: DRUG USE FOR UNKNOWN INDICATION
     Dosage: 5 Milligram
     Route: 065
     Dates: start: 20110317
  13. NOVORAPID [Concomitant]
     Indication: DRUG USE FOR UNKNOWN INDICATION
     Route: 065
     Dates: start: 20110317, end: 20110412
  14. ZOMETA [Concomitant]
     Indication: MULTIPLE MYELOMA
     Route: 041
     Dates: start: 20110322
  15. LACTEC [Concomitant]
     Indication: DRUG USE FOR UNKNOWN INDICATION
     Route: 041
     Dates: start: 20110324, end: 20110324
  16. REVLIMID [Suspect]
     Indication: MULTIPLE MYELOMA
     Dosage: 10 Milligram
     Route: 048
     Dates: start: 20110317, end: 20110322
  17. REVLIMID [Suspect]
     Dosage: 10 Milligram
     Route: 048
     Dates: start: 20010328, end: 20110331
  18. LENADEX [Suspect]
     Indication: MULTIPLE MYELOMA
     Dosage: 40 Milligram
     Route: 048
     Dates: start: 20110317, end: 20110320
  19. LENADEX [Suspect]
     Dosage: 40 Milligram
     Route: 048
     Dates: start: 20110325, end: 20110328
  20. PURSENNID [Concomitant]
     Indication: DRUG USE FOR UNKNOWN INDICATION
     Dosage: 24 Milligram
     Route: 048
     Dates: start: 20110317
  21. MAGLAX [Concomitant]
     Indication: DRUG USE FOR UNKNOWN INDICATION
     Dosage: 1500 Milligram
     Route: 048
     Dates: start: 20110317
  22. RESLIN [Concomitant]
     Indication: DRUG USE FOR UNKNOWN INDICATION
     Dosage: 25 Milligram
     Route: 048
     Dates: start: 20110317

REACTIONS (4)
  - Septic shock [Recovered/Resolved]
  - Neutropenia [Recovered/Resolved]
  - Bronchitis [Recovering/Resolving]
  - Dermatitis [Not Recovered/Not Resolved]
